FAERS Safety Report 9186377 (Version 2)
Quarter: 2013Q2

REPORT INFORMATION
  Report Type: Report from Study
  Country: US (occurrence: US)
  Receive Date: 20130325
  Receipt Date: 20130515
  Transmission Date: 20140414
  Serious: Yes (Hospitalization)
  Sender: FDA-Public Use
  Company Number: PHEH2013US006646

PATIENT
  Age: 54 Year
  Sex: Female

DRUGS (2)
  1. TASIGNA [Suspect]
     Indication: CHRONIC MYELOID LEUKAEMIA
     Dosage: 400 MG, BID
     Route: 048
     Dates: start: 20130129
  2. TASIGNA [Suspect]
     Dosage: 200 MG, BID
     Route: 048

REACTIONS (11)
  - Fungal skin infection [Recovering/Resolving]
  - Muscle spasms [Not Recovered/Not Resolved]
  - Myalgia [Recovering/Resolving]
  - Folliculitis [Recovering/Resolving]
  - Nausea [Recovering/Resolving]
  - Vomiting [Recovering/Resolving]
  - Abdominal pain upper [Recovering/Resolving]
  - Diarrhoea [Recovering/Resolving]
  - Faeces discoloured [Recovering/Resolving]
  - Rash [Recovering/Resolving]
  - Weight decreased [Recovering/Resolving]
